FAERS Safety Report 5707263-0 (Version None)
Quarter: 2008Q2

REPORT INFORMATION
  Report Type: 
  Country: None (occurrence: None)
  Receive Date: 20080414
  Receipt Date: 20080414
  Transmission Date: 20081010
  Serious: Yes (Death)
  Sender: FDA-Public Use
  Company Number: None

PATIENT
  Age: 29 Year
  Sex: Male

DRUGS (1)
  1. ZOLOFT [Suspect]

REACTIONS (7)
  - AGGRESSION [None]
  - AGITATION [None]
  - COMPLETED SUICIDE [None]
  - DRUG DOSE OMISSION [None]
  - DRUG WITHDRAWAL SYNDROME [None]
  - GUN SHOT WOUND [None]
  - PHYSICAL ASSAULT [None]
